FAERS Safety Report 20967141 (Version 1)
Quarter: 2022Q2

REPORT INFORMATION
  Report Type: Spontaneous
  Country: US (occurrence: None)
  Receive Date: 20220615
  Receipt Date: 20220615
  Transmission Date: 20220721
  Serious: Yes (Death)
  Sender: FDA-Public Use
  Company Number: None

PATIENT
  Age: 72 Year
  Sex: Male

DRUGS (2)
  1. XELODA [Suspect]
     Active Substance: CAPECITABINE
     Indication: Prostate cancer
     Dosage: 2000MG TWICE DAILY ORAL?
     Route: 048
     Dates: start: 20220509
  2. XELODA [Suspect]
     Active Substance: CAPECITABINE
     Indication: Neoplasm malignant

REACTIONS (1)
  - Death [None]
